FAERS Safety Report 4829568-8 (Version None)
Quarter: 2005Q4

REPORT INFORMATION
  Report Type: 
  Country: None (occurrence: None)
  Receive Date: 20051116
  Receipt Date: 20050316
  Transmission Date: 20060501
  Serious: Yes (Life-Threatening, Hospitalization)
  Sender: FDA-Public Use
  Company Number: GBWYE508916MAR05

PATIENT
  Sex: Male

DRUGS (12)
  1. ENBREL [Suspect]
     Indication: RHEUMATOID ARTHRITIS
     Route: 058
     Dates: start: 20040802, end: 20050306
  2. NSAIDS [Suspect]
     Dosage: UNKNOWN
     Route: 065
  3. DEPO-MEDRONE [Concomitant]
     Route: 065
  4. CORTICOSTEROID NOS [Concomitant]
     Dosage: 15 MG, FREQUENCY UNKNOWN
     Route: 065
  5. PREDNISOLONE [Concomitant]
     Route: 065
     Dates: start: 20021206
  6. PREDNISOLONE [Concomitant]
     Dates: start: 20050101
  7. AMITRIPTYLINE HCL [Concomitant]
     Route: 065
  8. CALCIUM CARBONATE [Concomitant]
     Route: 065
     Dates: start: 20021101
  9. NAPROXEN [Concomitant]
     Route: 065
     Dates: start: 20041124, end: 20050310
  10. LANSOPRAZOLE [Concomitant]
  11. ACETAMINOPHEN [Concomitant]
  12. TRAMADOL HCL [Concomitant]

REACTIONS (7)
  - BLOOD POTASSIUM INCREASED [None]
  - CLOSTRIDIAL INFECTION [None]
  - CULTURE STOOL POSITIVE [None]
  - CUTANEOUS VASCULITIS [None]
  - PERICARDIAL EFFUSION [None]
  - PLEURAL EFFUSION [None]
  - RASH [None]
